FAERS Safety Report 13046879 (Version 1)
Quarter: 2016Q4

REPORT INFORMATION
  Report Type: Spontaneous
  Country: US (occurrence: US)
  Receive Date: 20161220
  Receipt Date: 20161220
  Transmission Date: 20170207
  Serious: No
  Sender: FDA-Public Use
  Company Number: US-PFIZER INC-3122068

PATIENT

DRUGS (6)
  1. LEVAQUIN [Suspect]
     Active Substance: LEVOFLOXACIN
     Indication: PNEUMONIA
     Dosage: UNK
  2. CEFEPIME HCL [Interacting]
     Active Substance: CEFEPIME HYDROCHLORIDE
     Indication: SEPSIS
  3. LEVAQUIN [Suspect]
     Active Substance: LEVOFLOXACIN
     Indication: SEPSIS
  4. CEFEPIME HCL [Suspect]
     Active Substance: CEFEPIME HYDROCHLORIDE
     Indication: PNEUMONIA
     Dosage: 1 G, UNK
  5. VANCOMYCIN [Interacting]
     Active Substance: VANCOMYCIN
     Indication: PNEUMONIA
     Dosage: UNK
  6. VANCOMYCIN [Interacting]
     Active Substance: VANCOMYCIN
     Indication: SEPSIS

REACTIONS (2)
  - Inhibitory drug interaction [Unknown]
  - Blood creatinine increased [Unknown]
